FAERS Safety Report 5529967-5 (Version None)
Quarter: 2007Q4

REPORT INFORMATION
  Report Type: 
  Country: None (occurrence: None)
  Receive Date: 20071127
  Receipt Date: 20071120
  Transmission Date: 20080405
  Serious: Yes (Life-Threatening)
  Sender: FDA-Public Use
  Company Number: 2007-0007

PATIENT

DRUGS (3)
  1. FLUOXETINE [Suspect]
     Indication: DEPRESSION
  2. NSAID [Suspect]
  3. NSAID [Concomitant]

REACTIONS (1)
  - UPPER GASTROINTESTINAL HAEMORRHAGE [None]
